FAERS Safety Report 8166459-1 (Version None)
Quarter: 2012Q1

REPORT INFORMATION
  Report Type: 
  Country: None (occurrence: None)
  Receive Date: 20120227
  Receipt Date: 20110818
  Transmission Date: 20120608
  Serious: No
  Sender: FDA-Public Use
  Company Number: US-MYLANLABS-2011S1017262

PATIENT
  Age: 17 Year
  Sex: Male

DRUGS (1)
  1. AMNESTEEM [Suspect]
     Indication: ACNE
     Route: 048
     Dates: start: 20110601, end: 20110701

REACTIONS (3)
  - EAR INFECTION [None]
  - MONONUCLEOSIS SYNDROME [None]
  - PHARYNGITIS STREPTOCOCCAL [None]
